FAERS Safety Report 9100894 (Version 2)
Quarter: 2013Q2

REPORT INFORMATION
  Report Type: Spontaneous
  Country: US (occurrence: US)
  Receive Date: 20130214
  Receipt Date: 20130514
  Transmission Date: 20140414
  Serious: Yes (Hospitalization)
  Sender: FDA-Public Use
  Company Number: US-BAYER-2013-017780

PATIENT
  Age: 43 Year
  Sex: Female
  Weight: 76.64 kg

DRUGS (38)
  1. YAZ [Suspect]
     Dosage: UNK
     Dates: start: 2008, end: 2009
  2. YASMIN [Suspect]
     Dosage: UNK
     Dates: start: 2008, end: 2009
  3. OCELLA [Suspect]
     Dosage: UNK
     Dates: start: 2008, end: 2009
  4. LIDOCAINE HCL [Concomitant]
     Indication: SPINAL OPERATION
     Dosage: 20 ML, UNK
     Dates: start: 20100205
  5. LIDOCAINE HCL [Concomitant]
     Indication: SPINAL OPERATION
     Dosage: 20 ML
     Dates: start: 20100219
  6. LIDOCAINE HCL [Concomitant]
     Indication: SPINAL OPERATION
     Dosage: 20 ML
     Dates: start: 20100305
  7. MARCAINE [Concomitant]
     Indication: SPINAL OPERATION
     Dosage: 6 ML, UNK
     Dates: start: 20100205
  8. ISOVUE [Concomitant]
     Indication: SPINAL OPERATION
     Dosage: 6 ML, UNK
     Dates: start: 20100205
  9. ISOVUE [Concomitant]
     Indication: SPINAL OPERATION
     Dosage: 6 ML
     Dates: start: 20100219
  10. VERSED [Concomitant]
     Indication: SPINAL OPERATION
     Dosage: 1 MG, UNK
     Route: 042
     Dates: start: 20100205
  11. VERSED [Concomitant]
     Indication: SPINAL OPERATION
     Dosage: 2 MG, UNK
     Route: 042
     Dates: start: 20100219
  12. VERSED [Concomitant]
     Indication: SPINAL OPERATION
     Dosage: 4 MG, UNK
     Route: 042
     Dates: start: 20100305
  13. VERSED [Concomitant]
     Indication: SPINAL OPERATION
     Dosage: 3 MG, UNK
     Route: 042
     Dates: start: 20100512
  14. HYDROCODONE W/ACETAMINOPHEN [Concomitant]
     Indication: PAIN
     Dosage: 5 MG/500 MG 1-2 TABS EVERY 6 HOURS
     Route: 048
     Dates: start: 20100205
  15. HYDROCODONE W/ACETAMINOPHEN [Concomitant]
     Indication: PAIN
     Dosage: 5 MG/500 MG 1-2 TABS EVERY 6 HOURS
     Dates: start: 20100219
  16. HYDROCODONE W/ACETAMINOPHEN [Concomitant]
     Indication: PAIN
     Dosage: 5 MG/500 MG 1-2 TABS EVERY 6 HOURS
     Dates: start: 20100305
  17. KENALOG [Concomitant]
     Indication: SPINAL OPERATION
     Dosage: 40 MG, UNK
     Dates: start: 20100305
  18. PROPOFOL [Concomitant]
     Dosage: 150 MG, UNK
     Dates: start: 20100305
  19. PROPOFOL [Concomitant]
     Dosage: 150 MG
     Dates: start: 20100512
  20. FENTANYL [Concomitant]
     Dosage: 100 MCG
     Dates: start: 20100305
  21. FENTANYL [Concomitant]
     Dosage: 100 MCG
     Dates: start: 20100512
  22. SYNTHROID [Concomitant]
     Dosage: 25 MCG DAILY
     Route: 048
  23. CALCIUM +VIT D [Concomitant]
     Dosage: 600 TWICE DAILY
  24. XYLOCAINE WITH ADRENALINE (1:200000) [Concomitant]
     Dosage: UNK
     Dates: start: 20100512
  25. ANCEF [Concomitant]
     Dosage: 1 G, UNK
     Route: 042
     Dates: start: 20100512
  26. DILAUDID [Concomitant]
     Dosage: 1
     Dates: start: 20100512
  27. ZOFRAN [Concomitant]
     Dosage: 4
     Dates: start: 20100512
  28. ROCURONIUM [Concomitant]
     Dosage: 40
     Dates: start: 20100512
  29. DESFLURANE [Concomitant]
     Dosage: UNK
     Dates: start: 20100512
  30. MARCAINE WITH EPINEPHRINE [Concomitant]
     Dosage: 22 ML, UNK
     Dates: start: 20100512
  31. PHENERGAN [Concomitant]
     Dosage: 6.25 MG, UNK
     Route: 042
     Dates: start: 20100512
  32. MULTIVITAMIN [Concomitant]
     Dosage: 1 DF, DAILY
     Route: 048
  33. FISH OIL [Concomitant]
     Dosage: [2] BID
  34. FLEXERIL [Concomitant]
     Dosage: 5 MG 3 TIMES DAILY AS NEEDED
     Route: 048
  35. FLEXERIL [Concomitant]
     Dosage: 5 MG DAILY
     Route: 048
  36. CALCIUM [Concomitant]
     Dosage: DAILY [TIMES] 2
     Route: 048
  37. FENOFIBRATE [Concomitant]
     Dosage: 134 MG, DAILY
     Route: 048
  38. CIPROFLOXACIN HCL [Concomitant]
     Dosage: 500 MG, BID
     Route: 048
     Dates: start: 20100512, end: 20100516

REACTIONS (8)
  - Pulmonary embolism [Recovered/Resolved]
  - Abdominal pain [None]
  - Injury [Recovered/Resolved]
  - Pain [None]
  - General physical health deterioration [Recovered/Resolved]
  - Anxiety [None]
  - Emotional distress [None]
  - Pain [Recovered/Resolved]
